FAERS Safety Report 15762744 (Version 1)
Quarter: 2018Q4

REPORT INFORMATION
  Report Type: Spontaneous
  Country: DE (occurrence: DE)
  Receive Date: 20181226
  Receipt Date: 20181226
  Transmission Date: 20190205
  Serious: Yes (Death, Life-Threatening, Hospitalization, Other)
  Sender: FDA-Public Use
  Company Number: PHHY2014DE185158

PATIENT
  Age: 66 Year
  Sex: Female
  Weight: 90 kg

DRUGS (6)
  1. PACLITAXEL. [Suspect]
     Active Substance: PACLITAXEL
     Indication: BREAST CANCER
     Dosage: 225 MG/M2, Q2W
     Route: 042
     Dates: start: 20140305, end: 20140402
  2. EPIRUBICIN [Suspect]
     Active Substance: EPIRUBICIN
     Indication: BREAST CANCER
     Dosage: 150 MG/M2, Q2W (CUMULATIVE DOSE 910.5 MG)
     Route: 042
     Dates: start: 20140122, end: 20140219
  3. TRASTUZUMAB. [Suspect]
     Active Substance: TRASTUZUMAB
     Indication: HER-2 POSITIVE BREAST CANCER
     Dosage: 600 MG, Q3W
     Route: 058
     Dates: start: 20140304, end: 20140416
  4. TRASTUZUMAB. [Suspect]
     Active Substance: TRASTUZUMAB
     Dosage: 600 MG, UNK
     Route: 058
  5. CYCLOPHOSPHAMIDE. [Suspect]
     Active Substance: CYCLOPHOSPHAMIDE
     Indication: HER-2 POSITIVE BREAST CANCER
     Dosage: 2000 MG/M2, Q2W
     Route: 042
     Dates: start: 20140416, end: 20140416
  6. TRASTUZUMAB. [Suspect]
     Active Substance: TRASTUZUMAB
     Dosage: 600 MG, Q3W
     Route: 058
     Dates: start: 20140911, end: 20140911

REACTIONS (32)
  - Paraesthesia [Not Recovered/Not Resolved]
  - Dyspnoea [Recovered/Resolved]
  - Hypokalaemia [Recovered/Resolved]
  - Dehydration [Recovered/Resolved]
  - Epistaxis [Recovered/Resolved]
  - General physical health deterioration [Recovered/Resolved]
  - Acute respiratory failure [Recovered/Resolved]
  - Mitral valve incompetence [Recovering/Resolving]
  - Malnutrition [Recovering/Resolving]
  - General physical health deterioration [Recovered/Resolved]
  - Tricuspid valve incompetence [Recovered/Resolved]
  - Hypertension [Unknown]
  - Aortic valve incompetence [Not Recovered/Not Resolved]
  - Atrial fibrillation [Unknown]
  - Erythema [Recovered/Resolved]
  - Constipation [Unknown]
  - Breast cancer [Fatal]
  - Multi-organ disorder [Recovered/Resolved]
  - Septic shock [Recovered/Resolved]
  - Cardiac failure [Recovered/Resolved]
  - General physical health deterioration [Unknown]
  - Metastases to central nervous system [Unknown]
  - Electrolyte imbalance [Recovered/Resolved]
  - Dizziness [Not Recovered/Not Resolved]
  - Sepsis [Recovered/Resolved]
  - General physical health deterioration [Fatal]
  - Tachyarrhythmia [Recovered/Resolved]
  - Acute respiratory distress syndrome [Recovered/Resolved]
  - Pneumonia [Recovered/Resolved]
  - Lacrimation increased [Not Recovered/Not Resolved]
  - Brain oedema [Unknown]
  - Hyponatraemia [Recovered/Resolved]

NARRATIVE: CASE EVENT DATE: 20140304
